FAERS Safety Report 12904100 (Version 2)
Quarter: 2019Q1

REPORT INFORMATION
  Report Type: Spontaneous
  Country: GB (occurrence: GB)
  Receive Date: 20161101
  Receipt Date: 20190217
  Transmission Date: 20190417
  Serious: Yes (Other)
  Sender: FDA-Public Use
  Company Number: GB-JNJFOC-20161018535

PATIENT
  Age: 4 Month
  Sex: Male
  Weight: 7 kg

DRUGS (5)
  1. BEXSERO [Suspect]
     Active Substance: MENINGOCOCCAL GROUP B VACCINE
     Indication: IMMUNISATION
     Route: 065
     Dates: start: 20161007, end: 20161007
  2. DTPA IPV HIB VACCINE [Suspect]
     Active Substance: DIPHTHERIA AND TETANUS TOXOIDS AND ACELLULAR PERTUSSIS ADSORBED, INACTIVATED POLIOVIRUS AND HAEMOPHILUS B CONJUGATE (TETANUS TOXOID CONJUGATE) VACCINE
     Indication: IMMUNISATION
     Route: 065
     Dates: start: 20161007, end: 20161007
  3. PREVNAR 13 [Suspect]
     Active Substance: PNEUMOCOCCAL 13-VALENT CONJUGATE VACCINE
     Indication: IMMUNISATION
     Route: 065
     Dates: start: 20161007, end: 20161007
  4. NYSTATIN. [Concomitant]
     Active Substance: NYSTATIN
     Indication: PRODUCT USED FOR UNKNOWN INDICATION
     Route: 065
  5. CALPOL [Suspect]
     Active Substance: ACETAMINOPHEN
     Indication: IRRITABILITY
     Route: 065
     Dates: start: 20161007

REACTIONS (7)
  - Off label use [Unknown]
  - Dyskinesia [Recovering/Resolving]
  - Poor feeding infant [Recovering/Resolving]
  - Dermatitis allergic [Recovering/Resolving]
  - Product use in unapproved indication [Unknown]
  - Irritability [Recovering/Resolving]
  - Vomiting [Recovering/Resolving]

NARRATIVE: CASE EVENT DATE: 20161007
